FAERS Safety Report 5009690-6 (Version None)
Quarter: 2006Q2

REPORT INFORMATION
  Report Type: 
  Country: None (occurrence: None)
  Receive Date: 20060524
  Receipt Date: 20060426
  Transmission Date: 20061013
  Serious: Yes (Disabling)
  Sender: FDA-Public Use
  Company Number: AU-AVENTIS-200615213GDDC

PATIENT
  Age: 32 Year
  Sex: Female

DRUGS (3)
  1. TAXOTERE [Suspect]
     Route: 042
  2. ADRIAMYCIN PFS [Suspect]
  3. CYCLOPHOSPHAMIDE [Suspect]

REACTIONS (4)
  - MYOPATHY TOXIC [None]
  - NEUROTOXICITY [None]
  - OEDEMA [None]
  - WEIGHT INCREASED [None]
